FAERS Safety Report 7927593-1 (Version None)
Quarter: 2011Q4

REPORT INFORMATION
  Report Type: 
  Country: None (occurrence: None)
  Receive Date: 20111117
  Receipt Date: 20111117
  Transmission Date: 20120403
  Serious: No
  Sender: FDA-Public Use
  Company Number: None

PATIENT

DRUGS (1)
  1. PARENT'S CHOICE CREAMY DIAPER RASH OINTMENT WITH ALOE AND VITAMIN E, 4 [Suspect]

REACTIONS (4)
  - HYPERSENSITIVITY [None]
  - HAEMORRHAGE [None]
  - SKIN ULCER [None]
  - SKIN EXFOLIATION [None]
